FAERS Safety Report 17025761 (Version 2)
Quarter: 2019Q4

REPORT INFORMATION
  Report Type: Spontaneous
  Country: US (occurrence: US)
  Receive Date: 20191113
  Receipt Date: 20191114
  Transmission Date: 20200122
  Serious: No
  Sender: FDA-Public Use
  Company Number: US-PFIZER INC-2019484781

PATIENT
  Age: 66 Year
  Sex: Female

DRUGS (4)
  1. DOXYCYCLINE HYCLATE. [Interacting]
     Active Substance: DOXYCYCLINE HYCLATE
     Indication: STAPHYLOCOCCAL INFECTION
  2. IRON [Interacting]
     Active Substance: IRON
     Indication: ANAEMIA
     Dosage: UNK
  3. DOXYCYCLINE HYCLATE. [Suspect]
     Active Substance: DOXYCYCLINE HYCLATE
     Indication: INFECTION
     Dosage: UNK
  4. CALCIUM [Interacting]
     Active Substance: CALCIUM
     Dosage: UNK

REACTIONS (1)
  - Drug interaction [Unknown]
